FAERS Safety Report 4874557-0 (Version None)
Quarter: 2006Q1

REPORT INFORMATION
  Report Type: 
  Country: None (occurrence: None)
  Receive Date: 20060106
  Receipt Date: 20051229
  Transmission Date: 20060701
  Serious: Yes (Other)
  Sender: FDA-Public Use
  Company Number: SE-AMGEN-UK163294

PATIENT
  Sex: Male

DRUGS (2)
  1. ARANESP [Suspect]
     Indication: MYELODYSPLASTIC SYNDROME
  2. BLOOD, WHOLE [Concomitant]
     Route: 065

REACTIONS (5)
  - ANAEMIA [None]
  - APLASIA PURE RED CELL [None]
  - CONDITION AGGRAVATED [None]
  - ERYTHROPOIESIS ABNORMAL [None]
  - THERAPEUTIC RESPONSE DECREASED [None]
